FAERS Safety Report 9280485 (Version 1)
Quarter: 2013Q2

REPORT INFORMATION
  Report Type: Spontaneous
  Country: US (occurrence: None)
  Receive Date: 20130507
  Receipt Date: 20130507
  Transmission Date: 20140414
  Serious: Yes (Hospitalization)
  Sender: FDA-Public Use
  Company Number: None

PATIENT
  Age: 57 Year
  Sex: Male
  Weight: 109 kg

DRUGS (3)
  1. METHOTREXATE [Suspect]
  2. RITUXIMAB (MOAB C2B8 ANTI CD20, CHIMERIC) [Suspect]
  3. TEMOZOLOMIDE [Suspect]

REACTIONS (2)
  - Orthostatic hypotension [None]
  - Pyrexia [None]
